FAERS Safety Report 15957480 (Version 7)
Quarter: 2020Q1

REPORT INFORMATION
  Report Type: Report from Study
  Country: CO (occurrence: CO)
  Receive Date: 20190213
  Receipt Date: 20200122
  Transmission Date: 20200409
  Serious: Yes (Death, Life-Threatening, Hospitalization)
  Sender: FDA-Public Use
  Company Number: CO-INCYTE CORPORATION-2019IN001085

PATIENT

DRUGS (2)
  1. JAKAVI [Suspect]
     Active Substance: RUXOLITINIB
     Indication: MYELOFIBROSIS
     Dosage: 10 MG, QD (ONCE DAILY)
     Route: 048
     Dates: start: 20170410
  2. JAKAVI [Suspect]
     Active Substance: RUXOLITINIB
     Dosage: 5 MG (EVERY 12 HOURS)
     Route: 048

REACTIONS (9)
  - Joint injury [Unknown]
  - Urinary tract infection [Unknown]
  - Cellulitis of male external genital organ [Unknown]
  - Contusion [Unknown]
  - Death [Fatal]
  - Pain [Unknown]
  - Cellulitis [Unknown]
  - Respiratory rate decreased [Unknown]
  - Inappropriate schedule of product administration [Unknown]

NARRATIVE: CASE EVENT DATE: 20191129
